FAERS Safety Report 5013184-1 (Version None)
Quarter: 2006Q2

REPORT INFORMATION
  Report Type: 
  Country: None (occurrence: None)
  Receive Date: 20060530
  Receipt Date: 20060315
  Transmission Date: 20061013
  Serious: No
  Sender: FDA-Public Use
  Company Number: US-GLAXOSMITHKLINE-A0597672A

PATIENT
  Age: 69 Year
  Sex: Male

DRUGS (4)
  1. WELLBUTRIN XL [Suspect]
     Indication: DEPRESSION
     Dosage: 300MG PER DAY
     Route: 048
     Dates: start: 20050101
  2. FOLGARD [Concomitant]
  3. TRICOR [Concomitant]
  4. LASIX [Concomitant]

REACTIONS (2)
  - FATIGUE [None]
  - SEXUAL DYSFUNCTION [None]
